FAERS Safety Report 13940445 (Version 1)
Quarter: 2017Q3

REPORT INFORMATION
  Report Type: Spontaneous
  Country: NZ (occurrence: NZ)
  Receive Date: 20170906
  Receipt Date: 20170906
  Transmission Date: 20171127
  Serious: Yes (Life-Threatening, Hospitalization)
  Sender: FDA-Public Use
  Company Number: NZ-CASPER PHARMA LLC-2017SEB00401

PATIENT

DRUGS (2)
  1. ALLOPURINOL. [Suspect]
     Active Substance: ALLOPURINOL
     Indication: GOUT
     Route: 065
  2. WARFARIN [Concomitant]
     Active Substance: WARFARIN
     Route: 065

REACTIONS (1)
  - International normalised ratio increased [Unknown]
